FAERS Safety Report 6755381-0 (Version None)
Quarter: 2010Q2

REPORT INFORMATION
  Report Type: 
  Country: None (occurrence: None)
  Receive Date: 20100604
  Receipt Date: 20100525
  Transmission Date: 20101027
  Serious: Yes (Hospitalization)
  Sender: FDA-Public Use
  Company Number: CH-PFIZER INC-2010065794

PATIENT
  Age: 32 Year
  Sex: Male

DRUGS (11)
  1. REVATIO [Suspect]
     Indication: THROMBOTIC MICROANGIOPATHY
     Dosage: 20 MG, 1X/DAY
     Route: 048
     Dates: start: 20100322, end: 20100327
  2. NEURONTIN [Suspect]
     Indication: PAIN IN EXTREMITY
     Dosage: 300 MG, 3X/DAY
     Route: 048
     Dates: start: 20100308, end: 20100329
  3. CEFUROXIME AXETIL [Suspect]
     Indication: PULMONARY FUNCTION TEST ABNORMAL
     Dosage: 500 MG, 2X/DAY
     Route: 048
     Dates: start: 20100327, end: 20100329
  4. ILOMEDIN [Suspect]
     Dosage: UNK
     Route: 041
     Dates: start: 20100311, end: 20100327
  5. OXYCONTIN [Concomitant]
     Indication: PAIN
     Dosage: 50 MG, 2X/DAY
     Route: 048
     Dates: start: 20100325
  6. PRAVASTATIN [Concomitant]
     Indication: THROMBOTIC MICROANGIOPATHY
     Dosage: 40 MG, 1X/DAY
     Route: 048
  7. OMEPRAZOLE [Concomitant]
     Route: 048
  8. PROGRAF [Concomitant]
     Dosage: 4.5 MG, 2X/DAY
  9. PREDNISONE TAB [Concomitant]
     Dosage: 5 MG, 1X/DAY
  10. CELLCEPT [Concomitant]
     Dosage: 500 MG, 2X/DAY
  11. ASPIRIN [Concomitant]
     Dosage: 100 MG, 1X/DAY

REACTIONS (1)
  - MIXED LIVER INJURY [None]
